FAERS Safety Report 8477694-7 (Version None)
Quarter: 2012Q2

REPORT INFORMATION
  Report Type: 
  Country: None (occurrence: None)
  Receive Date: 20120629
  Receipt Date: 20120626
  Transmission Date: 20120825
  Serious: Yes (Hospitalization)
  Sender: FDA-Public Use
  Company Number: US-PURDUE-USA-2012-0087632

PATIENT
  Sex: Male
  Weight: 100.68 kg

DRUGS (2)
  1. OXYCONTIN [Suspect]
     Indication: PAIN IN EXTREMITY
  2. OXYCONTIN [Suspect]
     Indication: BACK PAIN
     Dosage: 480 MG, EVERY 8 HOURS

REACTIONS (1)
  - PNEUMONIA [None]
